FAERS Safety Report 4268648-5 (Version None)
Quarter: 2004Q1

REPORT INFORMATION
  Report Type: 
  Country: None (occurrence: None)
  Receive Date: 20040112
  Receipt Date: 20031231
  Transmission Date: 20041129
  Serious: Yes (Life-Threatening, Hospitalization, Disabling)
  Sender: FDA-Public Use
  Company Number: WAES 0401USA00013

PATIENT
  Age: 53 Year
  Sex: Female

DRUGS (2)
  1. [THERAPY UNSPECIFIED] [Suspect]
  2. VIOXX [Suspect]
     Route: 048
     Dates: start: 20010101

REACTIONS (3)
  - ASTHENIA [None]
  - CEREBROVASCULAR ACCIDENT [None]
  - SPEECH DISORDER [None]
